FAERS Safety Report 17307180 (Version 1)
Quarter: 2020Q1

REPORT INFORMATION
  Report Type: Spontaneous
  Country: DE (occurrence: DE)
  Receive Date: 20200123
  Receipt Date: 20200123
  Transmission Date: 20200409
  Serious: Yes (Other)
  Sender: FDA-Public Use
  Company Number: DE-US-PROVELL PHARMACEUTICALS LLC-E2B_90072963

PATIENT
  Sex: Female

DRUGS (1)
  1. EUTHYROX [Suspect]
     Active Substance: LEVOTHYROXINE SODIUM
     Indication: PRODUCT USED FOR UNKNOWN INDICATION
     Dates: start: 201911

REACTIONS (8)
  - Somnolence [Unknown]
  - Hot flush [Unknown]
  - Palpitations [Unknown]
  - Restlessness [Unknown]
  - Dizziness [Unknown]
  - Fatigue [Unknown]
  - Feeling of body temperature change [Unknown]
  - Sleep disorder [Unknown]

NARRATIVE: CASE EVENT DATE: 201912
